FAERS Safety Report 15366345 (Version 1)
Quarter: 2018Q3

REPORT INFORMATION
  Report Type: Spontaneous
  Country: US (occurrence: US)
  Receive Date: 20180910
  Receipt Date: 20180910
  Transmission Date: 20181010
  Serious: Yes (Other)
  Sender: FDA-Public Use
  Company Number: US-SA-2017SA265719

PATIENT
  Age: 44 Year
  Sex: Female

DRUGS (4)
  1. TAXOTERE [Suspect]
     Active Substance: DOCETAXEL
     Dosage: 250 MG, QCY
     Route: 042
     Dates: start: 20040311, end: 20040311
  2. TAXOTERE [Suspect]
     Active Substance: DOCETAXEL
     Dosage: 250 UNK
     Route: 042
     Dates: start: 20040331, end: 20040331
  3. TAXOTERE [Suspect]
     Active Substance: DOCETAXEL
     Dosage: 250 MG, QCY
     Route: 042
     Dates: start: 20040423, end: 20040423
  4. TAXOTERE [Suspect]
     Active Substance: DOCETAXEL
     Dosage: 250 MG, QCY
     Route: 042
     Dates: start: 20040220, end: 20040220

REACTIONS (2)
  - Alopecia [Not Recovered/Not Resolved]
  - Psychological trauma [Unknown]
